FAERS Safety Report 4417916-2 (Version None)
Quarter: 2004Q2

REPORT INFORMATION
  Report Type: 
  Country: None (occurrence: None)
  Receive Date: 20040622
  Receipt Date: 20030521
  Transmission Date: 20050107
  Serious: No
  Sender: FDA-Public Use
  Company Number: 333700

PATIENT
  Age: 89 Year
  Sex: Female
  Weight: 55.3 kg

DRUGS (5)
  1. XELODA [Suspect]
     Dosage: 1000 MG DAILY ORAL
     Route: 048
     Dates: end: 20030205
  2. ATENOLOL [Concomitant]
  3. SYNTHROID [Concomitant]
  4. PLAVIX [Concomitant]
  5. ATENOLOL [Concomitant]

REACTIONS (1)
  - HYPERTENSION [None]
